FAERS Safety Report 24547378 (Version 2)
Quarter: 2025Q3

REPORT INFORMATION
  Report Type: Report from Study
  Country: US (occurrence: US)
  Receive Date: 20241025
  Receipt Date: 20250809
  Transmission Date: 20251021
  Serious: Yes (Other)
  Sender: ALEXION PHARMACEUTICALS
  Company Number: US-AstraZeneca-CH-00732099A

PATIENT
  Sex: Male

DRUGS (1)
  1. ULTOMIRIS [Suspect]
     Active Substance: RAVULIZUMAB-CWVZ
     Indication: Myasthenia gravis

REACTIONS (5)
  - Hypothyroidism [Unknown]
  - Muscular weakness [Unknown]
  - Dyspnoea exertional [Not Recovered/Not Resolved]
  - Eyelid ptosis [Recovering/Resolving]
  - Therapeutic product effect decreased [Unknown]
